FAERS Safety Report 8623189-7 (Version None)
Quarter: 2012Q3

REPORT INFORMATION
  Report Type: 
  Country: None (occurrence: None)
  Receive Date: 20120827
  Receipt Date: 20120820
  Transmission Date: 20120928
  Serious: No
  Sender: FDA-Public Use
  Company Number: JP-JNJFOC-20120809545

PATIENT
  Age: 92 Year
  Sex: Female

DRUGS (7)
  1. BIO-THREE [Concomitant]
     Route: 065
  2. MAGLAX [Concomitant]
     Route: 065
  3. AMLODIPINE [Concomitant]
     Indication: HYPERTENSION
     Route: 065
  4. DONEPEZIL HCL [Suspect]
     Indication: DEMENTIA
     Route: 065
     Dates: end: 20120101
  5. GALANTAMINE HYDROBROMIDE [Suspect]
     Indication: DEMENTIA
     Route: 048
     Dates: start: 20120101
  6. MEMANTINE HYDROCHLORIDE [Concomitant]
     Indication: DEMENTIA
     Route: 048
  7. VESICARE [Concomitant]
     Route: 065

REACTIONS (1)
  - DYSPHEMIA [None]
